FAERS Safety Report 15682006 (Version 4)
Quarter: 2022Q2

REPORT INFORMATION
  Report Type: Spontaneous
  Country: US (occurrence: US)
  Receive Date: 20181203
  Receipt Date: 20220427
  Transmission Date: 20220720
  Serious: No
  Sender: FDA-Public Use
  Company Number: US-PFIZER INC-2018497954

PATIENT
  Age: 58 Year
  Sex: Female

DRUGS (12)
  1. CHANTIX [Suspect]
     Active Substance: VARENICLINE TARTRATE
     Dosage: UNK
  2. VARENICLINE TARTRATE [Suspect]
     Active Substance: VARENICLINE TARTRATE
     Dosage: UNK
  3. AZELASTINE [Suspect]
     Active Substance: AZELASTINE
     Dosage: UNK
  4. ACETAMINOPHEN\PROPOXYPHENE NAPSYLATE [Suspect]
     Active Substance: ACETAMINOPHEN\PROPOXYPHENE NAPSYLATE
     Dosage: UNK
  5. ROSUVASTATIN CALCIUM [Suspect]
     Active Substance: ROSUVASTATIN CALCIUM
     Dosage: UNK
  6. VILAZODONE [Suspect]
     Active Substance: VILAZODONE
     Dosage: UNK
  7. ASTELIN [Suspect]
     Active Substance: AZELASTINE HYDROCHLORIDE
     Dosage: UNK
  8. DARVOCET [Suspect]
     Active Substance: ACETAMINOPHEN\PROPOXYPHENE HYDROCHLORIDE
     Dosage: UNK
  9. VIIBRYD [Suspect]
     Active Substance: VILAZODONE HYDROCHLORIDE
     Dosage: UNK
  10. LEVOTHYROXINE [Suspect]
     Active Substance: LEVOTHYROXINE
     Dosage: 100 UG, DAILY (BEFORE BREAKFAST)
     Route: 048
     Dates: start: 20201228
  11. TRAMADOL [Suspect]
     Active Substance: TRAMADOL
     Dosage: UNK
  12. CRESTOR [Suspect]
     Active Substance: ROSUVASTATIN CALCIUM
     Dosage: UNK

REACTIONS (1)
  - Drug hypersensitivity [Unknown]
